FAERS Safety Report 6791206-5 (Version None)
Quarter: 2010Q2

REPORT INFORMATION
  Report Type: 
  Country: None (occurrence: None)
  Receive Date: 20100624
  Receipt Date: 20100312
  Transmission Date: 20101027
  Serious: No
  Sender: FDA-Public Use
  Company Number: US-BAUSCH-2010BL001390

PATIENT
  Age: 80 Year
  Sex: Female

DRUGS (6)
  1. BRIMONIDINE TARTRATE [Suspect]
     Indication: OPEN ANGLE GLAUCOMA
     Route: 047
     Dates: start: 20100222
  2. TRAVATAN [Concomitant]
     Indication: OPEN ANGLE GLAUCOMA
     Route: 047
  3. COSOPT [Concomitant]
     Indication: OPEN ANGLE GLAUCOMA
     Route: 047
  4. FOSAMAX [Concomitant]
     Indication: OSTEOPOROSIS PROPHYLAXIS
  5. PRINIVIL [Concomitant]
     Indication: HYPERTENSION
  6. COUMADIN [Concomitant]
     Indication: CARDIAC ASSISTANCE DEVICE USER

REACTIONS (1)
  - COUGH [None]
